FAERS Safety Report 24956037 (Version 1)
Quarter: 2025Q1

REPORT INFORMATION
  Report Type: Spontaneous
  Country: US (occurrence: US)
  Receive Date: 20250211
  Receipt Date: 20250211
  Transmission Date: 20250409
  Serious: Yes (Hospitalization, Other)
  Sender: ROCHE
  Company Number: US-ROCHE-10000195808

PATIENT
  Age: 14 Year
  Sex: Female

DRUGS (25)
  1. TOCILIZUMAB [Suspect]
     Active Substance: TOCILIZUMAB
     Indication: Haemophagocytic lymphohistiocytosis
     Route: 050
     Dates: start: 20240510
  2. TOCILIZUMAB [Suspect]
     Active Substance: TOCILIZUMAB
     Route: 050
     Dates: start: 20240706
  3. PREDNISONE [Suspect]
     Active Substance: PREDNISONE
     Indication: Haemophagocytic lymphohistiocytosis
     Dosage: UNKNOWN
     Route: 050
  4. ANAKINRA [Suspect]
     Active Substance: ANAKINRA
     Indication: Haemophagocytic lymphohistiocytosis
     Route: 050
     Dates: start: 20240228, end: 20240510
  5. ANAKINRA [Suspect]
     Active Substance: ANAKINRA
     Route: 065
     Dates: start: 20240612, end: 20240703
  6. ANAKINRA [Suspect]
     Active Substance: ANAKINRA
     Route: 050
     Dates: start: 20240914, end: 20241006
  7. ANAKINRA [Suspect]
     Active Substance: ANAKINRA
     Route: 050
     Dates: start: 20241015
  8. METHYLPREDNISOLONE [Suspect]
     Active Substance: METHYLPREDNISOLONE
     Indication: Haemophagocytic lymphohistiocytosis
     Route: 050
     Dates: start: 20240201, end: 20240310
  9. METHYLPREDNISOLONE [Suspect]
     Active Substance: METHYLPREDNISOLONE
     Route: 050
     Dates: start: 20240521, end: 20240525
  10. METHYLPREDNISOLONE [Suspect]
     Active Substance: METHYLPREDNISOLONE
     Route: 050
     Dates: start: 20240602, end: 20240605
  11. METHYLPREDNISOLONE [Suspect]
     Active Substance: METHYLPREDNISOLONE
     Route: 050
     Dates: start: 20240905, end: 20240907
  12. PREDNISOLONE [Suspect]
     Active Substance: PREDNISOLONE
     Indication: Haemophagocytic lymphohistiocytosis
     Route: 050
     Dates: start: 20240407, end: 20240430
  13. PREDNISOLONE [Suspect]
     Active Substance: PREDNISOLONE
     Route: 050
     Dates: start: 20240605, end: 20240621
  14. PREDNISOLONE [Suspect]
     Active Substance: PREDNISOLONE
     Route: 050
     Dates: start: 20240621, end: 20240628
  15. PREDNISOLONE [Suspect]
     Active Substance: PREDNISOLONE
     Route: 050
     Dates: start: 20240628, end: 20240703
  16. PREDNISOLONE [Suspect]
     Active Substance: PREDNISOLONE
     Route: 050
     Dates: start: 20241217
  17. HYDROCORTISONE [Suspect]
     Active Substance: HYDROCORTISONE
     Indication: Haemophagocytic lymphohistiocytosis
     Route: 050
     Dates: start: 20240823, end: 20241216
  18. JAKAFI [Suspect]
     Active Substance: RUXOLITINIB
     Indication: Haemophagocytic lymphohistiocytosis
     Route: 050
     Dates: start: 20240522, end: 20240530
  19. JAKAFI [Suspect]
     Active Substance: RUXOLITINIB
     Route: 050
     Dates: start: 20240531, end: 20240604
  20. JAKAFI [Suspect]
     Active Substance: RUXOLITINIB
     Route: 050
     Dates: start: 20240605, end: 20240607
  21. JAKAFI [Suspect]
     Active Substance: RUXOLITINIB
     Route: 050
     Dates: start: 20240607, end: 20240902
  22. EMAPALUMAB [Suspect]
     Active Substance: EMAPALUMAB
     Indication: Haemophagocytic lymphohistiocytosis
     Route: 050
     Dates: start: 20240704, end: 20240715
  23. FIDAXOMICIN [Suspect]
     Active Substance: FIDAXOMICIN
     Indication: Clostridium difficile infection
     Route: 050
  24. METHADONE [Concomitant]
     Active Substance: METHADONE HYDROCHLORIDE
  25. DIAZEPAM [Concomitant]
     Active Substance: DIAZEPAM

REACTIONS (30)
  - Pyrexia [Not Recovered/Not Resolved]
  - Inflammation [Not Recovered/Not Resolved]
  - Viraemia [Unknown]
  - Oral candidiasis [Unknown]
  - Clostridium difficile infection [Unknown]
  - Thrombosis [Unknown]
  - Pneumonia [Unknown]
  - Hyperferritinaemia [Not Recovered/Not Resolved]
  - Pulmonary oedema [Unknown]
  - Pneumonia aspiration [Unknown]
  - Histoplasmosis [Unknown]
  - Respiratory failure [Not Recovered/Not Resolved]
  - Chronic respiratory failure [Not Recovered/Not Resolved]
  - Respiratory failure [Unknown]
  - Dysphagia [Unknown]
  - Hypernatraemia [Not Recovered/Not Resolved]
  - Hyperuricaemia [Unknown]
  - Thrombosis prophylaxis [Unknown]
  - Dermatitis exfoliative generalised [Recovered/Resolved]
  - Haemophagocytic lymphohistiocytosis [Not Recovered/Not Resolved]
  - Cytomegalovirus viraemia [Unknown]
  - Epstein-Barr viraemia [Unknown]
  - Acute kidney injury [Recovered/Resolved]
  - Adrenal insufficiency [Unknown]
  - Drug reaction with eosinophilia and systemic symptoms [Unknown]
  - Proteinuria [Unknown]
  - Hypovolaemia [Recovering/Resolving]
  - Hypercalcaemia [Recovering/Resolving]
  - Off label use [Unknown]
  - Weaning failure [Unknown]
